FAERS Safety Report 24425550 (Version 1)
Quarter: 2024Q4

REPORT INFORMATION
  Report Type: Spontaneous
  Country: US (occurrence: US)
  Receive Date: 20241011
  Receipt Date: 20241011
  Transmission Date: 20250115
  Serious: Yes (Hospitalization, Other)
  Sender: JUBILANT
  Company Number: None

PATIENT
  Age: 35 Year
  Sex: Male

DRUGS (1)
  1. LEVOFLOXACIN [Suspect]
     Active Substance: LEVOFLOXACIN
     Indication: Colitis
     Dosage: UNK, UNK

REACTIONS (3)
  - Haemolytic uraemic syndrome [Recovering/Resolving]
  - Gastroenteritis Escherichia coli [Unknown]
  - Product prescribing issue [Unknown]
